FAERS Safety Report 8046695-5 (Version None)
Quarter: 2012Q1

REPORT INFORMATION
  Report Type: 
  Country: None (occurrence: None)
  Receive Date: 20120116
  Receipt Date: 20120104
  Transmission Date: 20120608
  Serious: Yes (Other)
  Sender: FDA-Public Use
  Company Number: FR-BRISTOL-MYERS SQUIBB COMPANY-16333460

PATIENT
  Age: 57 Year
  Sex: Female

DRUGS (1)
  1. BARACLUDE [Suspect]
     Indication: HEPATITIS B
     Dosage: BARACLUDE 0.5 MG TABLETS

REACTIONS (5)
  - ASTHENIA [None]
  - INSOMNIA [None]
  - AMNESIA [None]
  - DIZZINESS [None]
  - PAIN [None]
